FAERS Safety Report 9412948 (Version 1)
Quarter: 2013Q2

REPORT INFORMATION
  Report Type: Spontaneous
  Country: US (occurrence: None)
  Receive Date: 20130626
  Receipt Date: 20130626
  Transmission Date: 20140414
  Serious: Yes (Other)
  Sender: FDA-Public Use
  Company Number: USA/USA/13/0029934

PATIENT
  Age: 48 Year
  Sex: Female

DRUGS (5)
  1. LEVOFLOXACIN TABLETS 500 MG (LEVOFLOXACIN) [Suspect]
     Indication: RESPIRATORY TRACT INFECTION
     Route: 048
     Dates: start: 20130412
  2. LEVOFLOXACIN TABLETS 500 MG (LEVOFLOXACIN) [Suspect]
     Indication: SINUSITIS
     Route: 048
     Dates: start: 20130412
  3. CLARITIN-D (NARINE/01202601/) [Concomitant]
  4. FUROSEMIDE (FUROSEMIDE) [Concomitant]
  5. KLOR-CON (POTASSIUM CHLORIDE) [Concomitant]

REACTIONS (5)
  - Dysgeusia [None]
  - Anosmia [None]
  - Pneumonia [None]
  - Bronchitis [None]
  - Lung infection [None]
